FAERS Safety Report 4883381-4 (Version None)
Quarter: 2006Q1

REPORT INFORMATION
  Report Type: 
  Country: None (occurrence: None)
  Receive Date: 20060113
  Receipt Date: 20051223
  Transmission Date: 20060701
  Serious: Yes (Other)
  Sender: FDA-Public Use
  Company Number: USA0506100587

PATIENT
  Age: 65 Year
  Sex: Female

DRUGS (10)
  1. FORTEO [Suspect]
     Indication: OSTEOPOROSIS
     Dosage: 20 UG,
     Dates: start: 20050413
  2. FORTEO [Suspect]
  3. FORTEO PEN, 250MCG/ML (3ML) (FORTEO PEN 250MCG/ML (3ML)) PEN, DISPOSAB [Concomitant]
  4. FORTEO [Concomitant]
  5. CALCIUM GLUCONATE [Concomitant]
  6. MULTIVITAMINS, PLAIN [Concomitant]
  7. LIPITOR [Concomitant]
  8. ELAVIL [Concomitant]
  9. XANAX /USA/ (ALPRAZOLAM) [Concomitant]
  10. PERCOCET [Concomitant]

REACTIONS (14)
  - CHOLELITHIASIS [None]
  - COLONIC POLYP [None]
  - DIARRHOEA [None]
  - DIVERTICULITIS [None]
  - FATIGUE [None]
  - INJECTION SITE ERYTHEMA [None]
  - MEDICAL DEVICE COMPLICATION [None]
  - NAUSEA [None]
  - PAIN [None]
  - PANCREATIC DISORDER [None]
  - PANCREATITIS CHRONIC [None]
  - PHARMACEUTICAL PRODUCT COMPLAINT [None]
  - REFUSAL OF TREATMENT BY PATIENT [None]
  - VOMITING [None]
